FAERS Safety Report 4802347-3 (Version None)
Quarter: 2005Q4

REPORT INFORMATION
  Report Type: 
  Country: None (occurrence: None)
  Receive Date: 20051012
  Receipt Date: 20050930
  Transmission Date: 20060501
  Serious: Yes (Other)
  Sender: FDA-Public Use
  Company Number: HQWYE863706OCT05

PATIENT
  Age: 55 Year
  Sex: Female

DRUGS (6)
  1. RAPAMUNE [Suspect]
     Indication: PROPHYLAXIS AGAINST TRANSPLANT REJECTION
     Dosage: 2 MG 1X PER 1 DAY ORAL
     Route: 048
     Dates: start: 20050325, end: 20050510
  2. RAPAMUNE [Suspect]
     Indication: PROPHYLAXIS AGAINST TRANSPLANT REJECTION
     Dosage: 2 MG 1X PER 1 DAY ORAL
     Route: 048
     Dates: start: 20050517
  3. PREDNISONE [Concomitant]
  4. CLONAZEPAM [Concomitant]
  5. NIFEDIPINE [Concomitant]
  6. CYCLOSPORINE [Concomitant]

REACTIONS (2)
  - GASTRITIS [None]
  - HAEMOGLOBIN DECREASED [None]
